FAERS Safety Report 20061025 (Version 1)
Quarter: 2021Q4

REPORT INFORMATION
  Report Type: Spontaneous
  Country: AR (occurrence: AR)
  Receive Date: 20211112
  Receipt Date: 20211112
  Transmission Date: 20220304
  Serious: Yes (Life-Threatening, Hospitalization)
  Sender: FDA-Public Use
  Company Number: AR-MLMSERVICE-20211102-3193408-1

PATIENT
  Age: 85 Year
  Sex: Female

DRUGS (4)
  1. HYDROCORTISONE [Interacting]
     Active Substance: HYDROCORTISONE
     Indication: Product used for unknown indication
     Route: 065
  2. HYDROCORTISONE [Interacting]
     Active Substance: HYDROCORTISONE
     Route: 065
  3. MODAFINIL [Interacting]
     Active Substance: MODAFINIL
     Indication: Apathy
     Route: 065
  4. LEVOTHYROXINE [Concomitant]
     Active Substance: LEVOTHYROXINE
     Indication: Product used for unknown indication

REACTIONS (2)
  - Adrenocortical insufficiency acute [Recovering/Resolving]
  - Drug interaction [Unknown]
